FAERS Safety Report 17061671 (Version 1)
Quarter: 2019Q4

REPORT INFORMATION
  Report Type: Spontaneous
  Country: CA (occurrence: CA)
  Receive Date: 20191121
  Receipt Date: 20191121
  Transmission Date: 20200122
  Serious: Yes (Other)
  Sender: FDA-Public Use
  Company Number: CA-ASCEND THERAPEUTICS US, LLC-2077101

PATIENT
  Age: 46 Year
  Sex: Female

DRUGS (1)
  1. ESTROGEL [Suspect]
     Active Substance: ESTRADIOL
     Indication: MENOPAUSE
     Route: 062
     Dates: start: 2015

REACTIONS (8)
  - Pain [Unknown]
  - Malaise [Unknown]
  - Fibrocystic breast disease [Unknown]
  - Cardiac disorder [Unknown]
  - Lymph node pain [Unknown]
  - Hiatus hernia [Unknown]
  - Swollen tear duct [Not Recovered/Not Resolved]
  - Ovarian cyst [Unknown]

NARRATIVE: CASE EVENT DATE: 2019
